FAERS Safety Report 6939315-1 (Version None)
Quarter: 2010Q3

REPORT INFORMATION
  Report Type: 
  Country: None (occurrence: None)
  Receive Date: 20100824
  Receipt Date: 20100817
  Transmission Date: 20110219
  Serious: Yes (Hospitalization)
  Sender: FDA-Public Use
  Company Number: DE-AMGEN-QUU430815

PATIENT
  Sex: Male
  Weight: 75 kg

DRUGS (2)
  1. NPLATE [Suspect]
     Indication: IDIOPATHIC THROMBOCYTOPENIC PURPURA
     Route: 058
     Dates: start: 20100625, end: 20100813
  2. RITUXIMAB [Concomitant]
     Route: 042
     Dates: start: 20100423

REACTIONS (1)
  - ACUTE CORONARY SYNDROME [None]
